FAERS Safety Report 7173536-0 (Version None)
Quarter: 2010Q4

REPORT INFORMATION
  Report Type: 
  Country: None (occurrence: None)
  Receive Date: 20101219
  Receipt Date: 20100303
  Transmission Date: 20110411
  Serious: No
  Sender: FDA-Public Use
  Company Number: US-AMGEN-KDL397021

PATIENT

DRUGS (6)
  1. ENBREL [Suspect]
     Indication: PRODUCT USED FOR UNKNOWN INDICATION
     Dosage: 50 MG, QWK
     Route: 058
  2. METHOTREXATE [Concomitant]
     Dosage: 2.5 MG, UNK
  3. MELOXICAM [Concomitant]
     Dosage: 15 MG, UNK
  4. IRON [Concomitant]
     Dosage: 325 MG, UNK
  5. MULTI-VITAMINS [Concomitant]
     Dosage: UNK UNK, UNK
  6. ASCORBIC ACID [Concomitant]
     Dosage: 500 MG, UNK

REACTIONS (5)
  - CHILLS [None]
  - PRODUCTIVE COUGH [None]
  - PYREXIA [None]
  - SINUS CONGESTION [None]
  - SINUS HEADACHE [None]
